FAERS Safety Report 16981952 (Version 5)
Quarter: 2020Q2

REPORT INFORMATION
  Report Type: Spontaneous
  Country: ES (occurrence: ES)
  Receive Date: 20191101
  Receipt Date: 20200611
  Transmission Date: 20200713
  Serious: Yes (Other)
  Sender: FDA-Public Use
  Company Number: ES-SUN PHARMACEUTICAL INDUSTRIES LTD-2019RR-225735

PATIENT
  Age: 73 Year
  Sex: Female

DRUGS (5)
  1. EZETIMIBA (7432A) [Concomitant]
     Active Substance: EZETIMIBE
     Dosage: 10 MILLIGRAMS, DAILY
     Route: 048
     Dates: start: 201605, end: 201702
  2. ROSUVASTATIN. [Suspect]
     Active Substance: ROSUVASTATIN
     Indication: DYSLIPIDAEMIA
     Dosage: 5 MG EN DIAS ALTERNOS
     Route: 048
     Dates: start: 20180309, end: 20180915
  3. SIMVASTATIN. [Suspect]
     Active Substance: SIMVASTATIN
     Indication: DYSLIPIDAEMIA
     Dosage: 10 MILLIGRAMS, DAILY
     Route: 065
     Dates: start: 2015, end: 2015
  4. EZETIMIBA (7432A) [Concomitant]
     Active Substance: EZETIMIBE
     Indication: DYSLIPIDAEMIA
     Dosage: 10 MILLIGRAMS, DAILY
     Route: 048
     Dates: start: 20181213, end: 201904
  5. ATORVASTATIN [Suspect]
     Active Substance: ATORVASTATIN
     Indication: DYSLIPIDAEMIA
     Dosage: 20 MILLIGRAMS, DAILY
     Route: 048
     Dates: start: 2015, end: 201601

REACTIONS (1)
  - Immune-mediated myositis [Recovering/Resolving]

NARRATIVE: CASE EVENT DATE: 20180921
